FAERS Safety Report 8311389-5 (Version None)
Quarter: 2012Q2

REPORT INFORMATION
  Report Type: 
  Country: None (occurrence: None)
  Receive Date: 20120425
  Receipt Date: 20110523
  Transmission Date: 20120825
  Serious: No
  Sender: FDA-Public Use
  Company Number: US-MYLANLABS-2011S1008579

PATIENT
  Age: 54 Year
  Sex: Female
  Weight: 81.65 kg

DRUGS (6)
  1. IPRATROPIUM BROMIDE AND ALBUTEROL SULFATE [Suspect]
     Indication: RESPIRATORY DISORDER
     Route: 055
     Dates: start: 20110419, end: 20110420
  2. IPRATROPIUM BROMIDE AND ALBUTEROL SULFATE [Suspect]
     Route: 055
     Dates: start: 20110419, end: 20110420
  3. IPRATROPIUM BROMIDE AND ALBUTEROL SULFATE [Suspect]
     Indication: ASTHMA
     Route: 055
     Dates: start: 20110419, end: 20110420
  4. AZITHROMYCIN [Concomitant]
  5. PREDNISONE [Concomitant]
  6. IPRATROPIUM BROMIDE AND ALBUTEROL SULFATE [Suspect]
     Route: 055
     Dates: start: 20110419, end: 20110420

REACTIONS (1)
  - HYPERSENSITIVITY [None]
